FAERS Safety Report 5008691-1 (Version None)
Quarter: 2006Q2

REPORT INFORMATION
  Report Type: 
  Country: None (occurrence: None)
  Receive Date: 20060518
  Receipt Date: 20060508
  Transmission Date: 20061013
  Serious: Yes (Other)
  Sender: FDA-Public Use
  Company Number: 2005138277

PATIENT
  Sex: Female
  Weight: 54.4316 kg

DRUGS (13)
  1. SINEQUAN [Suspect]
     Indication: DEPRESSION
     Dosage: ORAL
     Route: 048
     Dates: start: 19680101, end: 19690101
  2. SYNTHROID [Concomitant]
  3. EVISTA [Concomitant]
  4. MAXALT [Concomitant]
  5. DURAGESIC-100 [Concomitant]
  6. KLONOPIN [Concomitant]
  7. NEXIUM [Concomitant]
  8. SOMA [Concomitant]
  9. DARVOCET [Concomitant]
  10. LORCET-HD [Concomitant]
  11. LASIX [Concomitant]
  12. POTASSIUM (POTASSIUM) [Concomitant]
  13. CYANOCOBALAMIN [Concomitant]

REACTIONS (7)
  - ARTHRITIS [None]
  - INTERVERTEBRAL DISC PROTRUSION [None]
  - LICHEN PLANUS [None]
  - MEMORY IMPAIRMENT [None]
  - MONOPLEGIA [None]
  - NERVOUS SYSTEM DISORDER [None]
  - SOMNOLENCE [None]
